FAERS Safety Report 12675494 (Version 1)
Quarter: 2016Q3

REPORT INFORMATION
  Report Type: Spontaneous
  Country: US (occurrence: US)
  Receive Date: 20160823
  Receipt Date: 20160823
  Transmission Date: 20161109
  Serious: Yes (Other)
  Sender: FDA-Public Use
  Company Number: US-DRREDDYS-USA/USA/16/0082400

PATIENT
  Age: 1 Year
  Sex: Female
  Weight: 12.4 kg

DRUGS (1)
  1. VENLAFAXINE HYDROCHLORIDE. [Suspect]
     Active Substance: VENLAFAXINE HYDROCHLORIDE
     Indication: PRODUCT USED FOR UNKNOWN INDICATION
     Route: 065

REACTIONS (8)
  - Respiratory rate increased [Unknown]
  - Somnolence [Unknown]
  - Lethargy [Unknown]
  - Seizure [Unknown]
  - Toxicity to various agents [Unknown]
  - Overdose [Unknown]
  - Tachycardia [Unknown]
  - Off label use [Unknown]
